FAERS Safety Report 25199855 (Version 3)
Quarter: 2025Q2

REPORT INFORMATION
  Report Type: Spontaneous
  Country: DE (occurrence: GB)
  Receive Date: 20250415
  Receipt Date: 20250603
  Transmission Date: 20250717
  Serious: Yes (Death, Other)
  Sender: MYLAN
  Company Number: DE-862174955-ML2025-01644

PATIENT
  Age: 34 Year
  Sex: Female

DRUGS (5)
  1. PAROXETINE [Interacting]
     Active Substance: PAROXETINE
     Indication: Sinus tachycardia
  2. PAROXETINE [Interacting]
     Active Substance: PAROXETINE
     Indication: Bundle branch block left
  3. IVABRADINE [Interacting]
     Active Substance: IVABRADINE
     Indication: Bundle branch block left
  4. IVABRADINE [Interacting]
     Active Substance: IVABRADINE
     Indication: Sinus tachycardia
  5. AMITRIPTYLINE [Interacting]
     Active Substance: AMITRIPTYLINE
     Indication: Product used for unknown indication

REACTIONS (4)
  - Sudden cardiac death [Fatal]
  - Arrhythmia [Fatal]
  - Drug interaction [Fatal]
  - Product use in unapproved indication [Unknown]

NARRATIVE: CASE EVENT DATE: 20230908
